FAERS Safety Report 17791391 (Version 1)
Quarter: 2020Q2

REPORT INFORMATION
  Report Type: Spontaneous
  Country: JP (occurrence: JP)
  Receive Date: 20200515
  Receipt Date: 20200515
  Transmission Date: 20200714
  Serious: Yes (Other)
  Sender: FDA-Public Use
  Company Number: JP-ACCORD-181370

PATIENT
  Age: 56 Year
  Sex: Male

DRUGS (2)
  1. CARBOPLATIN. [Suspect]
     Active Substance: CARBOPLATIN
     Indication: THYMIC CANCER METASTATIC
     Dates: start: 201909, end: 2019
  2. PACLITAXEL. [Suspect]
     Active Substance: PACLITAXEL
     Indication: THYMIC CANCER METASTATIC
     Dates: start: 201909, end: 2019

REACTIONS (1)
  - Acute promyelocytic leukaemia [Recovering/Resolving]

NARRATIVE: CASE EVENT DATE: 201910
